FAERS Safety Report 8261928-8 (Version None)
Quarter: 2012Q2

REPORT INFORMATION
  Report Type: 
  Country: None (occurrence: None)
  Receive Date: 20120402
  Receipt Date: 20120319
  Transmission Date: 20120825
  Serious: Yes (Death, Hospitalization)
  Sender: FDA-Public Use
  Company Number: 2012MA003634

PATIENT
  Age: 64 Year
  Sex: Male

DRUGS (5)
  1. TICLOPIDINE HYDROCHLORIDE [Suspect]
     Indication: ANTIPLATELET THERAPY
     Dosage: 200 MG;QD;PO
     Route: 048
  2. ASPIRIN [Suspect]
     Indication: ANTIPLATELET THERAPY
     Dosage: 100 MG;QD;PO
     Route: 048
  3. NIFEKALANT [Concomitant]
  4. HEPARIN [Suspect]
     Dosage: IV
     Route: 042
  5. OMEPRAZOLE [Concomitant]

REACTIONS (8)
  - INCREASED TENDENCY TO BRUISE [None]
  - VASCULITIS [None]
  - PULMONARY HAEMORRHAGE [None]
  - ACUTE RESPIRATORY FAILURE [None]
  - DISSEMINATED INTRAVASCULAR COAGULATION [None]
  - HAEMOGLOBIN DECREASED [None]
  - ACUTE RESPIRATORY DISTRESS SYNDROME [None]
  - PLATELET COUNT DECREASED [None]
